FAERS Safety Report 6730825-9 (Version None)
Quarter: 2010Q2

REPORT INFORMATION
  Report Type: 
  Country: None (occurrence: None)
  Receive Date: 20100514
  Receipt Date: 20100506
  Transmission Date: 20101027
  Serious: Yes (Hospitalization)
  Sender: FDA-Public Use
  Company Number: DSA_42665_2010

PATIENT
  Sex: Male

DRUGS (3)
  1. BUPROPION HYDROCHLORIDE   (ELONTRIL - BUPROPION HYDROCHLORIDE) [Suspect]
     Indication: DEPRESSION
     Dosage: (150 MG, TOTAL DAILY DOSE ORAL)
     Route: 048
     Dates: start: 20100201, end: 20100211
  2. VALPROATE SODIUM [Concomitant]
  3. SERTRALINE HCL [Concomitant]

REACTIONS (7)
  - ABNORMAL SENSATION IN EYE [None]
  - APATHY [None]
  - COMA [None]
  - DEPRESSED MOOD [None]
  - DRUG INTOLERANCE [None]
  - HYPERHIDROSIS [None]
  - THERAPEUTIC AGENT TOXICITY [None]
